FAERS Safety Report 14231793 (Version 3)
Quarter: 2018Q1

REPORT INFORMATION
  Report Type: Spontaneous
  Country: US (occurrence: US)
  Receive Date: 20171128
  Receipt Date: 20180111
  Transmission Date: 20180508
  Serious: Yes (Hospitalization)
  Sender: FDA-Public Use
  Company Number: US-VERTEX PHARMACEUTICALS-2017-006474

PATIENT
  Age: 38 Year
  Sex: Female

DRUGS (20)
  1. FLUTICASONE PROPIONATE (GLUCOCORTICOID) [Concomitant]
     Active Substance: FLUTICASONE PROPIONATE
     Dosage: 1 SPRAY IN EACH NOSTRIL, BID
     Route: 045
     Dates: start: 20160502
  2. SODIUM CHLORIDE. [Concomitant]
     Active Substance: SODIUM CHLORIDE
     Dosage: NEBULISE 1 AMPULE, BID
     Route: 055
     Dates: start: 20170901
  3. ALENDRONATE SODIUM. [Concomitant]
     Active Substance: ALENDRONATE SODIUM
     Dosage: 1 DOSAGE FORM, QW, 30-60 MINUTES PRIOR TO BREAKFAST ON AN EMPTY STOMACH
     Route: 048
     Dates: start: 20160609
  4. AZITHROMYCIN ANHYDROUS. [Concomitant]
     Active Substance: AZITHROMYCIN ANHYDROUS
     Dosage: 1 TAB, DAILY ON MON, WED, FRI
     Route: 048
     Dates: start: 20150330
  5. ADVAIR DISKUS [Concomitant]
     Active Substance: FLUTICASONE PROPIONATE\SALMETEROL XINAFOATE
     Dosage: INHALE 1 PUFF BY MOUTH TWICE DAILY
     Route: 055
     Dates: start: 20170508
  6. AQUADEKS                           /07679501/ [Concomitant]
     Active Substance: MINERALS\VITAMINS
     Dosage: 1 CAPSULE, BID
     Route: 048
     Dates: start: 20150126
  7. TOBI [Concomitant]
     Active Substance: TOBRAMYCIN
     Dosage: NEBULISE 1 AMPULE, BID (28 DAYS ON AND 28 DAYS OFF THERAPY)
     Route: 055
     Dates: start: 20141006
  8. VITAMIN D3 [Concomitant]
     Active Substance: CHOLECALCIFEROL
     Dosage: 3 CAPSULES DAILY
     Route: 048
     Dates: start: 20170228
  9. ORKAMBI [Suspect]
     Active Substance: IVACAFTOR\LUMACAFTOR
     Indication: CYSTIC FIBROSIS
     Dosage: 2 TABS (200/125 MG EACH), BID
     Route: 048
     Dates: start: 20150723
  10. COMBIVENT RESPIMAT [Concomitant]
     Active Substance: ALBUTEROL SULFATE\IPRATROPIUM BROMIDE
     Dosage: 1 PUFF, QID (MAXIMUM 6 PUFFS IN 24 HOURS)
     Route: 055
     Dates: start: 20130522
  11. PULMOZYME [Concomitant]
     Active Substance: DORNASE ALFA
     Dosage: 1 UT, BID VIA NEBULISER
     Route: 055
     Dates: start: 20140925
  12. CALTRATE                           /00944201/ [Concomitant]
     Active Substance: CALCIUM CARBONATE\CHOLECALCIFEROL
     Dosage: 1 DOSAGE FORM, BID
  13. CAYSTON [Concomitant]
     Active Substance: AZTREONAM
     Dosage: 1 VIAL VIA NEBULISER THREE TIMES A DAY FOR 28 DAYS, EVERY OTHER MONTH
     Route: 055
  14. CREON [Concomitant]
     Active Substance: PANCRELIPASE AMYLASE\PANCRELIPASE LIPASE\PANCRELIPASE PROTEASE
     Dosage: TAKE 4 CAPS WITH MEALS + 3 CAPS WITH SNACKS
     Route: 048
     Dates: start: 20130104
  15. LEVEMIR [Concomitant]
     Active Substance: INSULIN DETEMIR
     Dosage: 10 UNITS AT BEDTIME
     Dates: start: 20160502
  16. MIRTAZAPINE. [Concomitant]
     Active Substance: MIRTAZAPINE
     Dosage: 1 DOSAGE FORM, QD, AT BEDTIME
     Route: 048
  17. VENLAFAXINE                        /01233802/ [Concomitant]
     Active Substance: VENLAFAXINE HYDROCHLORIDE
     Dosage: UNK
     Route: 048
     Dates: start: 20160701
  18. ESOMEPRAZOLE MAGNESIUM DIHYDRATE [Concomitant]
     Active Substance: ESOMEPRAZOLE MAGNESIUM
     Dosage: 1 DOSAGE FORM, QD
     Route: 048
     Dates: start: 20150330
  19. LORATADINE. [Concomitant]
     Active Substance: LORATADINE
     Dosage: 1 DOSAGE FORM, QD
     Route: 048
  20. INSULIN [Concomitant]
     Active Substance: INSULIN NOS

REACTIONS (1)
  - Infective pulmonary exacerbation of cystic fibrosis [Recovered/Resolved]

NARRATIVE: CASE EVENT DATE: 20171101
